FAERS Safety Report 5747169-4 (Version None)
Quarter: 2008Q2

REPORT INFORMATION
  Report Type: 
  Country: None (occurrence: None)
  Receive Date: 20080520
  Receipt Date: 20080509
  Transmission Date: 20081010
  Serious: No
  Sender: FDA-Public Use
  Company Number: 20085127

PATIENT
  Age: 7 Year
  Sex: Female
  Weight: 23 kg

DRUGS (1)
  1. LIORESAL [Suspect]
     Indication: MUSCLE SPASTICITY
     Dosage: 100 MCG, DAILY, INTRATHECAL
     Route: 037

REACTIONS (7)
  - CATHETER RELATED COMPLICATION [None]
  - CATHETER SITE SWELLING [None]
  - CONDITION AGGRAVATED [None]
  - GAIT DISTURBANCE [None]
  - IMPLANT SITE SWELLING [None]
  - MENINGITIS [None]
  - MUSCLE SPASTICITY [None]
